FAERS Safety Report 23057040 (Version 1)
Quarter: 2023Q4

REPORT INFORMATION
  Report Type: Report from Study
  Country: IT (occurrence: IT)
  Receive Date: 20231012
  Receipt Date: 20231012
  Transmission Date: 20240109
  Serious: Yes (Other)
  Sender: FDA-Public Use
  Company Number: IT-CELLTRION INC.-2023IT019293

PATIENT

DRUGS (3)
  1. BEVACIZUMAB [Suspect]
     Active Substance: BEVACIZUMAB
     Indication: Rectal adenocarcinoma
     Dosage: 225 MG (DOSAGE TEXT: 225MG OGNI 14 GG)
     Route: 042
     Dates: start: 20230801, end: 20230801
  2. OXALIPLATIN [Suspect]
     Active Substance: OXALIPLATIN
     Indication: Rectal adenocarcinoma
     Dosage: 90 MG, (DOSAGE TEXT: 90MG OGNI 14GG)
     Route: 042
     Dates: start: 20230801, end: 20230801
  3. FLUOROURACIL [Suspect]
     Active Substance: FLUOROURACIL
     Indication: Rectal adenocarcinoma
     Dosage: 3360 MG (DOSAGE TEXT: 3360 EV OGNI 14GG)
     Route: 042
     Dates: start: 20230801, end: 20230801

REACTIONS (1)
  - Urticaria [Recovering/Resolving]

NARRATIVE: CASE EVENT DATE: 20230801
